FAERS Safety Report 5007070-0 (Version None)
Quarter: 2006Q2

REPORT INFORMATION
  Report Type: 
  Country: None (occurrence: None)
  Receive Date: 20060519
  Receipt Date: 20060517
  Transmission Date: 20061013
  Serious: Yes (Life-Threatening, Disabling)
  Sender: FDA-Public Use
  Company Number: FR-BOEHRINGER INGELHEIM PHARMACEUTICALS, INC.-2006-FF-00356FF

PATIENT
  Sex: Female

DRUGS (1)
  1. SIFROL [Suspect]
     Route: 048

REACTIONS (2)
  - CARDIAC ARREST [None]
  - HEMIPLEGIA [None]
